FAERS Safety Report 6812533-9 (Version None)
Quarter: 2010Q3

REPORT INFORMATION
  Report Type: 
  Country: None (occurrence: None)
  Receive Date: 20100701
  Receipt Date: 20100625
  Transmission Date: 20110219
  Serious: Yes (Other)
  Sender: FDA-Public Use
  Company Number: US-PFIZER INC-2008036531

PATIENT
  Sex: Female
  Weight: 61.224 kg

DRUGS (15)
  1. CELEBREX [Suspect]
     Indication: BONE PAIN
     Dosage: 20 MG, 3X/DAY
     Route: 048
  2. CELEBREX [Suspect]
     Indication: MUSCULOSKELETAL PAIN
  3. CELEBREX [Suspect]
     Indication: INFLAMMATION
  4. NORVASC [Suspect]
     Indication: MUSCULOSKELETAL PAIN
     Dosage: 20 MG, UNK
     Route: 048
     Dates: end: 20100601
  5. NORVASC [Suspect]
     Indication: INFLAMMATION
  6. MOBIC [Suspect]
     Indication: MUSCULOSKELETAL PAIN
     Dosage: 20 MG, UNK
     Route: 048
     Dates: start: 20080101
  7. MOBIC [Suspect]
     Indication: INFLAMMATION
  8. CIPLOX [Suspect]
     Indication: MUSCULOSKELETAL PAIN
     Dosage: UNK
     Route: 048
     Dates: start: 20100101, end: 20100601
  9. CIPLOX [Suspect]
     Indication: INFLAMMATION
  10. MOTRIN [Suspect]
     Indication: MUSCULOSKELETAL PAIN
     Dosage: 800 MG, 3X/DAY
     Route: 048
     Dates: start: 20100501
  11. MOTRIN [Suspect]
     Indication: INFLAMMATION
  12. NAPROXEN [Suspect]
     Indication: MUSCULOSKELETAL PAIN
     Dosage: UNK
     Dates: start: 20090101
  13. NAPROXEN [Suspect]
     Indication: INFLAMMATION
  14. TYLENOL [Suspect]
     Indication: MUSCULOSKELETAL PAIN
     Dosage: UNK
     Route: 048
  15. TYLENOL [Suspect]
     Indication: INFLAMMATION

REACTIONS (2)
  - DRUG INEFFECTIVE [None]
  - ULCER [None]
